FAERS Safety Report 7291056-X (Version None)
Quarter: 2011Q1

REPORT INFORMATION
  Report Type: 
  Country: None (occurrence: None)
  Receive Date: 20110202
  Receipt Date: 20110124
  Transmission Date: 20110831
  Serious: Yes (Hospitalization)
  Sender: FDA-Public Use
  Company Number: 2011S1000094

PATIENT
  Age: 68 Year
  Sex: Male

DRUGS (21)
  1. VOGLIBOSE [Concomitant]
  2. GINKGOBILOBA [Concomitant]
  3. PREV MEDS [Concomitant]
  4. NICERGOLIN /00396401/ [Concomitant]
  5. LIVALO [Suspect]
     Indication: HYPERCHOLESTEROLAEMIA
     Dosage: 2 MG;1X;PO
     Route: 048
     Dates: start: 20100804
  6. SIGMART [Concomitant]
  7. ASPIRIN [Concomitant]
  8. FOLIC ACID [Concomitant]
  9. DOBESILATE CALCIUM [Concomitant]
  10. GABAPENTIN [Concomitant]
  11. DIOVAN [Concomitant]
  12. NATEGLINIDE [Concomitant]
  13. GAMMA LINOLEIC ACID [Concomitant]
  14. PLAVIX [Concomitant]
  15. FINASTERIDE [Concomitant]
  16. METFORMIN [Concomitant]
  17. GLIMEPIRIDE [Concomitant]
  18. FERROUS SULFATED DRIED [Concomitant]
  19. OXCARBAZEPINE [Concomitant]
  20. VASTINAN [Concomitant]
  21. TERAZOSIN [Concomitant]

REACTIONS (3)
  - DYSPNOEA [None]
  - CHEST PAIN [None]
  - CORONARY ARTERIAL STENT INSERTION [None]
